FAERS Safety Report 17849282 (Version 1)
Quarter: 2020Q2

REPORT INFORMATION
  Report Type: Spontaneous
  Country: US (occurrence: US)
  Receive Date: 20200601
  Receipt Date: 20200601
  Transmission Date: 20200714
  Serious: Yes (Other)
  Sender: FDA-Public Use
  Company Number: None

PATIENT
  Age: 70 Year
  Sex: Female
  Weight: 83.2 kg

DRUGS (12)
  1. VANCOMYCIN 1.25G IV Q12HRS [Concomitant]
     Dates: start: 20200525, end: 20200525
  2. VANCOMYCIN 1G IV X ONE DOSE [Concomitant]
     Dates: start: 20200526, end: 20200526
  3. INSULIN IV INFUSION CONTINUOUS [Concomitant]
     Dates: start: 20200525
  4. REMDESIVIR EUA [Suspect]
     Active Substance: REMDESIVIR
     Indication: COVID-19 PNEUMONIA
     Route: 041
     Dates: start: 20200524, end: 20200526
  5. VANCOMYCIN 1.25G IV Q24HRS [Concomitant]
     Dates: start: 20200524, end: 20200524
  6. VANCOMYCIN 1G IV X ONE DOSE [Concomitant]
     Dates: start: 20200523, end: 20200523
  7. MIDAZOLAM IV INFUSION CONTINUOUS [Concomitant]
     Dates: start: 20200525
  8. REMDESIVIR EUA [Suspect]
     Active Substance: REMDESIVIR
     Indication: COVID-19 PNEUMONIA
     Dosage: ?          OTHER FREQUENCY:ONCE;?
     Route: 041
     Dates: start: 20200523, end: 20200523
  9. CLONIDINE 0.2MG TRANSDERMAL PATCH Q 7 DAYS [Concomitant]
     Dates: start: 20200524, end: 20200526
  10. ZOSYN 4.5G IV X ONE DOSE [Concomitant]
     Dates: start: 20200523, end: 20200523
  11. FENTANYL IV INFUSION [Concomitant]
     Dates: start: 20200525
  12. ZOSYN 3.375G IV Q8HRS EXTENDED INFUSION [Concomitant]
     Dates: start: 20200523, end: 20200528

REACTIONS (6)
  - Cells in urine [None]
  - Urine analysis abnormal [None]
  - Fungal infection [None]
  - White blood cells urine positive [None]
  - Glomerular filtration rate decreased [None]
  - Renal tubular necrosis [None]

NARRATIVE: CASE EVENT DATE: 20200526
